FAERS Safety Report 18895664 (Version 3)
Quarter: 2021Q1

REPORT INFORMATION
  Report Type: Spontaneous
  Country: US (occurrence: US)
  Receive Date: 20210216
  Receipt Date: 20210318
  Transmission Date: 20210420
  Serious: Yes (Hospitalization, Other)
  Sender: FDA-Public Use
  Company Number: US-BRISTOL-MYERS SQUIBB COMPANY-BMS-2021-014143

PATIENT
  Age: 58 Year
  Sex: Male
  Weight: 79.38 kg

DRUGS (16)
  1. SENNA [SENNA ALEXANDRINA] [Concomitant]
     Active Substance: SENNA LEAF
     Indication: CONSTIPATION
     Dosage: 2 TABS AT NIGHT
     Route: 048
     Dates: start: 20210224
  2. ZOFRAN [Concomitant]
     Active Substance: ONDANSETRON HYDROCHLORIDE
     Indication: NAUSEA
     Dosage: 8 MILLIGRAM, 1 TAB, Q8H
     Route: 048
     Dates: start: 20191216
  3. PALBOCICLIB [Suspect]
     Active Substance: PALBOCICLIB
     Indication: PANCREATIC CARCINOMA
     Dosage: 125 MILLIGRAM, QD
     Route: 048
     Dates: start: 20210210, end: 20210301
  4. ROXICODONE [Concomitant]
     Active Substance: OXYCODONE HYDROCHLORIDE
     Indication: ABDOMINAL PAIN
     Dosage: 1 TAB, Q8H
     Route: 048
     Dates: start: 20191120
  5. ROXICODONE [Concomitant]
     Active Substance: OXYCODONE HYDROCHLORIDE
     Dosage: 1 TAB, Q6H
     Route: 048
     Dates: start: 20210203
  6. SODIUM CHLORIDE. [Concomitant]
     Active Substance: SODIUM CHLORIDE
     Indication: BLOOD CREATININE INCREASED
     Dosage: 250 ML/HR CONTINUOUS
     Route: 065
     Dates: start: 20210217, end: 20210217
  7. MIRALAX [Concomitant]
     Active Substance: POLYETHYLENE GLYCOL 3350
     Indication: CONSTIPATION
     Dosage: TAKE 1?2 CAPSULES PRN, NO MORE THAN 2?3 DAILY
     Route: 048
     Dates: start: 20210224
  8. NORVASC [Concomitant]
     Active Substance: AMLODIPINE BESYLATE
     Indication: HYPERTENSION
     Dosage: 5 MILLIGRAM, BID
     Route: 048
     Dates: start: 20200430, end: 20210217
  9. MS CONTIN [Concomitant]
     Active Substance: MORPHINE SULFATE
     Indication: ABDOMINAL PAIN
     Dosage: 15 MILLIGRAM, Q12H
     Route: 048
     Dates: start: 20210203
  10. COLACE [Concomitant]
     Active Substance: DOCUSATE SODIUM
     Indication: CONSTIPATION
     Dosage: ONE CAPSULE IN THE MORNING AND ONE CAPSULE AT NIGHT
     Route: 048
     Dates: start: 20210224
  11. ELIQUIS [Suspect]
     Active Substance: APIXABAN
     Indication: HEPATIC VEIN THROMBOSIS
     Dosage: 2.5 MILLIGRAM, BID
     Route: 048
     Dates: start: 20200503, end: 20210204
  12. PRINIVIL [Concomitant]
     Active Substance: LISINOPRIL
     Indication: HYPERTENSION
     Dosage: 1 TAB, QD
     Route: 048
     Dates: start: 20200214, end: 20210217
  13. REMERON [Concomitant]
     Active Substance: MIRTAZAPINE
     Indication: DECREASED APPETITE
     Dosage: 1 TAB, QD (AT NIGHT)
     Route: 048
     Dates: start: 20201201
  14. ULIXERTINIB. [Suspect]
     Active Substance: ULIXERTINIB
     Indication: PANCREATIC CARCINOMA
     Dosage: 450 MILLIGRAM, BID
     Route: 048
     Dates: start: 20210203, end: 20210301
  15. TYLENOL [Concomitant]
     Active Substance: ACETAMINOPHEN
     Indication: PAIN IN EXTREMITY
     Dosage: UNK UNK, PRN
     Route: 065
     Dates: start: 20210122
  16. ZESTRIL [Concomitant]
     Active Substance: LISINOPRIL
     Indication: HYPERTENSION
     Dosage: 1 DOSAGE FORM, QD
     Route: 048
     Dates: start: 20200214, end: 20210217

REACTIONS (13)
  - Hypophagia [Unknown]
  - Tumour haemorrhage [Unknown]
  - Metastases to liver [Unknown]
  - Fatigue [Unknown]
  - Nausea [Recovered/Resolved]
  - Disease progression [Unknown]
  - Haemobilia [Unknown]
  - Deep vein thrombosis [Recovered/Resolved]
  - Anaemia [Unknown]
  - Implant site haemorrhage [Unknown]
  - Vomiting [Recovered/Resolved]
  - Treatment noncompliance [Unknown]
  - Intentional product use issue [Unknown]

NARRATIVE: CASE EVENT DATE: 20210204
